FAERS Safety Report 7998584-X (Version None)
Quarter: 2011Q4

REPORT INFORMATION
  Report Type: 
  Country: None (occurrence: None)
  Receive Date: 20111221
  Receipt Date: 20111212
  Transmission Date: 20120403
  Serious: Yes (Hospitalization)
  Sender: FDA-Public Use
  Company Number: US-ACTELION-A-US2011-57719

PATIENT

DRUGS (5)
  1. CALCIUM CHANNEL BLOCKERS [Concomitant]
  2. EPOPROSTENOL SODIUM [Suspect]
     Indication: PULMONARY ARTERIAL HYPERTENSION
     Dosage: 42 NG/KG, PER MIN
     Route: 042
     Dates: start: 20110303
  3. TRACLEER [Suspect]
     Indication: PULMONARY ARTERIAL HYPERTENSION
     Dosage: 62.5 MG, BID
     Route: 048
  4. SILDENAFIL [Concomitant]
  5. OXYGEN [Concomitant]

REACTIONS (4)
  - DEVICE ISSUE [None]
  - FLUID RETENTION [None]
  - PERICARDIAL EFFUSION [None]
  - PERICARDITIS [None]
